FAERS Safety Report 20024182 (Version 1)
Quarter: 2021Q4

REPORT INFORMATION
  Report Type: Spontaneous
  Country: ES (occurrence: ES)
  Receive Date: 20211102
  Receipt Date: 20211102
  Transmission Date: 20220303
  Serious: Yes (Other)
  Sender: FDA-Public Use
  Company Number: None

PATIENT
  Age: 85 Year
  Sex: Female
  Weight: 79 kg

DRUGS (1)
  1. ACETAMINOPHEN\TRAMADOL [Suspect]
     Active Substance: ACETAMINOPHEN\TRAMADOL
     Indication: Osteoporosis
     Dosage: 1 DOSAGE FORM, Q8H
     Route: 048

REACTIONS (2)
  - Disorientation [Recovered/Resolved]
  - Hallucination [Recovered/Resolved]
